FAERS Safety Report 8392738-9 (Version None)
Quarter: 2012Q1

REPORT INFORMATION
  Report Type: 
  Country: None (occurrence: None)
  Receive Date: 20120323
  Receipt Date: 20110309
  Transmission Date: 20120608
  Serious: Yes (Other)
  Sender: FDA-Public Use
  Company Number: 163-21880-11031437

PATIENT
  Age: 70 Year
  Sex: Male
  Weight: 88.5 kg

DRUGS (2)
  1. REVLIMID [Suspect]
     Indication: MULTIPLE MYELOMA
     Dosage: 20 MG, 2 IN 1 D, PO   10 MG, 1 IN 1 D, PO
     Route: 048
     Dates: start: 20110101
  2. REVLIMID [Suspect]
     Indication: MULTIPLE MYELOMA
     Dosage: 20 MG, 2 IN 1 D, PO   10 MG, 1 IN 1 D, PO
     Route: 048
     Dates: start: 20110210

REACTIONS (2)
  - INFLUENZA LIKE ILLNESS [None]
  - LIMB DISCOMFORT [None]
